FAERS Safety Report 4585611-5 (Version None)
Quarter: 2005Q1

REPORT INFORMATION
  Report Type: 
  Country: None (occurrence: None)
  Receive Date: 20050214
  Receipt Date: 20050203
  Transmission Date: 20050727
  Serious: Yes (Other)
  Sender: FDA-Public Use
  Company Number: 2005023024

PATIENT
  Age: 41 Year
  Sex: Female

DRUGS (2)
  1. CLINDAMYCIN PHOSPHATE [Suspect]
     Indication: INFECTION
     Dosage: 600 MG (600 MG, QD), INTRAVENOUS
     Route: 042
     Dates: start: 20041227, end: 20041228
  2. PIPERACILLIN SODIUM [Suspect]
     Indication: INFECTION
     Dosage: 2 GRAM (2 GRAM, QD), INTRAVENOUS
     Route: 042
     Dates: start: 20041227, end: 20041228

REACTIONS (4)
  - BLOOD PRESSURE DECREASED [None]
  - CHILLS [None]
  - DEPRESSED LEVEL OF CONSCIOUSNESS [None]
  - PYREXIA [None]
